FAERS Safety Report 4421416-3 (Version None)
Quarter: 2004Q3

REPORT INFORMATION
  Report Type: 
  Country: None (occurrence: None)
  Receive Date: 20040709
  Receipt Date: 20040611
  Transmission Date: 20050211
  Serious: No
  Sender: FDA-Public Use
  Company Number: 2004S1000125

PATIENT
  Age: 51 Year
  Sex: Female
  Weight: 72.1219 kg

DRUGS (6)
  1. CUBICIN [Suspect]
     Indication: ARTHRITIS INFECTIVE
     Dosage: 950 MG; Q2H; IV
     Route: 042
     Dates: start: 20040526, end: 20040609
  2. VANCOMYCIN [Concomitant]
  3. NEXIUM [Concomitant]
  4. LORTAB [Concomitant]
  5. XANAX [Concomitant]
  6. AMBIEN [Concomitant]

REACTIONS (3)
  - ASTHENIA [None]
  - BLOOD CREATINE PHOSPHOKINASE INCREASED [None]
  - PAIN IN EXTREMITY [None]
